FAERS Safety Report 6508795-8 (Version None)
Quarter: 2009Q4

REPORT INFORMATION
  Report Type: 
  Country: None (occurrence: None)
  Receive Date: 20091221
  Receipt Date: 20090813
  Transmission Date: 20100525
  Serious: No
  Sender: FDA-Public Use
  Company Number: US-ASTRAZENECA-2009SE07992

PATIENT
  Age: 25394 Day
  Sex: Male

DRUGS (2)
  1. CRESTOR [Suspect]
     Route: 048
     Dates: start: 20090301
  2. IBUPROFEN [Concomitant]
     Route: 048

REACTIONS (2)
  - PAIN [None]
  - SLEEP DISORDER [None]
